FAERS Safety Report 9229911 (Version 1)
Quarter: 2013Q2

REPORT INFORMATION
  Report Type: Spontaneous
  Country: US (occurrence: None)
  Receive Date: 20130412
  Receipt Date: 20130412
  Transmission Date: 20140414
  Serious: No
  Sender: FDA-Public Use
  Company Number: None

PATIENT
  Age: 40 Year
  Sex: Female
  Weight: 77.11 kg

DRUGS (1)
  1. EXJADE 500MG NOVARTIS [Suspect]
     Indication: IRON OVERLOAD
     Dosage: ?000MG QD PO
     Route: 048
     Dates: start: 201207

REACTIONS (2)
  - Headache [None]
  - Nail discolouration [None]
